FAERS Safety Report 16983306 (Version 2)
Quarter: 2020Q3

REPORT INFORMATION
  Report Type: Spontaneous
  Country: US (occurrence: US)
  Receive Date: 20191101
  Receipt Date: 20191104
  Transmission Date: 20201104
  Serious: Yes (Other)
  Sender: FDA-Public Use
  Company Number: US-PURDUE-USA-2019-0148805

PATIENT
  Sex: Female

DRUGS (5)
  1. ROXICODONE [Suspect]
     Active Substance: OXYCODONE HYDROCHLORIDE
     Indication: PAIN
     Dosage: 20 MG, BID AND PRN
     Route: 048
     Dates: end: 20190323
  2. OXYCONTIN [Suspect]
     Active Substance: OXYCODONE HYDROCHLORIDE
     Dosage: 40 MG, TID
     Route: 048
  3. OXYCONTIN [Suspect]
     Active Substance: OXYCODONE HYDROCHLORIDE
     Dosage: 40 MG, BID
     Route: 048
     Dates: end: 20190323
  4. HYOSCYAMINE. [Suspect]
     Active Substance: HYOSCYAMINE
     Indication: PRODUCT USED FOR UNKNOWN INDICATION
     Route: 048
  5. OXYCONTIN [Suspect]
     Active Substance: OXYCODONE HYDROCHLORIDE
     Indication: PAIN
     Dosage: 980 MG, DAILY
     Route: 048
     Dates: start: 200211, end: 200302

REACTIONS (13)
  - Irritable bowel syndrome [Not Recovered/Not Resolved]
  - Off label use [Recovered/Resolved]
  - Anger [Not Recovered/Not Resolved]
  - Drug withdrawal syndrome [Unknown]
  - Thinking abnormal [Not Recovered/Not Resolved]
  - Dysstasia [Recovered/Resolved]
  - Transient ischaemic attack [Unknown]
  - Hallucination [Unknown]
  - Diarrhoea [Not Recovered/Not Resolved]
  - Unevaluable event [Unknown]
  - Memory impairment [Not Recovered/Not Resolved]
  - Pain [Unknown]
  - Insomnia [Not Recovered/Not Resolved]

NARRATIVE: CASE EVENT DATE: 200211
